FAERS Safety Report 4749416-4 (Version None)
Quarter: 2005Q3

REPORT INFORMATION
  Report Type: 
  Country: None (occurrence: None)
  Receive Date: 20050819
  Receipt Date: 20050518
  Transmission Date: 20060218
  Serious: Yes (Hospitalization, Disabling, Other)
  Sender: FDA-Public Use
  Company Number: US-MERCK-0505USA02262

PATIENT
  Age: 45 Year
  Sex: Male
  Weight: 90 kg

DRUGS (10)
  1. VIOXX [Suspect]
     Indication: GOUT
     Route: 048
     Dates: end: 20040930
  2. MONOPRIL [Concomitant]
     Indication: HYPERTENSION
     Route: 065
     Dates: start: 19930101, end: 20050101
  3. VASOTEC RPD [Concomitant]
     Route: 048
     Dates: start: 19930101, end: 20050101
  4. LOPRESSOR [Concomitant]
     Route: 065
     Dates: start: 20000101, end: 20050101
  5. TOPROL-XL [Concomitant]
     Route: 065
     Dates: start: 20000101, end: 20050101
  6. NORVASC [Concomitant]
     Route: 065
     Dates: start: 19990101, end: 20050101
  7. HYTRIN [Concomitant]
     Route: 065
     Dates: start: 20000522, end: 20010101
  8. LASIX [Concomitant]
     Route: 065
     Dates: start: 20000101, end: 20050101
  9. ALDOMET (METHYLDOPATE HYDROCHLORIDE) [Concomitant]
     Route: 065
     Dates: start: 20000101
  10. PLAVIX [Concomitant]
     Route: 065
     Dates: start: 20000101, end: 20030101

REACTIONS (6)
  - AORTIC ANEURYSM [None]
  - CEREBROVASCULAR ACCIDENT [None]
  - CHEST PAIN [None]
  - INTRACRANIAL ANEURYSM [None]
  - RENAL ARTERY STENOSIS [None]
  - RENAL FAILURE [None]
